FAERS Safety Report 6031214-5 (Version None)
Quarter: 2008Q4

REPORT INFORMATION
  Report Type: 
  Country: None (occurrence: None)
  Receive Date: 20081222
  Receipt Date: 20081006
  Transmission Date: 20090506
  Serious: Yes (Other)
  Sender: FDA-Public Use
  Company Number: US-WYE-H06261508

PATIENT
  Age: 48 Year
  Sex: Female
  Weight: 56.75 kg

DRUGS (2)
  1. PRISTIQ [Suspect]
     Indication: MAJOR DEPRESSION
     Dosage: 50 MG 1X PER 1 DAY, ORAL
     Route: 048
     Dates: start: 20080915, end: 20080916
  2. XANAX [Suspect]
     Indication: ANXIETY
     Dosage: 0.5 MG 3X PER 1 DAY, 1 MG 3X PER 1 DAY, ORAL
     Route: 048

REACTIONS (1)
  - CONVULSION [None]
